FAERS Safety Report 5128544-8 (Version None)
Quarter: 2006Q4

REPORT INFORMATION
  Report Type: 
  Country: None (occurrence: None)
  Receive Date: 20061011
  Receipt Date: 20060928
  Transmission Date: 20070319
  Serious: Yes (Other)
  Sender: FDA-Public Use
  Company Number: CHPA2006US09918

PATIENT
  Age: 26 Year
  Sex: Female
  Weight: 62.6 kg

DRUGS (2)
  1. TRANSDERM SCOP [Suspect]
     Indication: DIZZINESS
     Dosage: 1.5 MG, TRANSDERMAL
     Route: 062
     Dates: start: 20060922, end: 20060925
  2. ZITHROMAX [Concomitant]

REACTIONS (9)
  - BALANCE DISORDER [None]
  - DRY MOUTH [None]
  - HALLUCINATION, AUDITORY [None]
  - HEART RATE INCREASED [None]
  - INSOMNIA [None]
  - MALAISE [None]
  - MUSCLE TWITCHING [None]
  - VISION BLURRED [None]
  - VISUAL DISTURBANCE [None]
